FAERS Safety Report 23073581 (Version 3)
Quarter: 2024Q2

REPORT INFORMATION
  Report Type: Spontaneous
  Country: ZA (occurrence: ZA)
  Receive Date: 20231017
  Receipt Date: 20240422
  Transmission Date: 20240716
  Serious: Yes (Death, Hospitalization, Other)
  Sender: FDA-Public Use
  Company Number: ZA-002147023-NVSC2023ZA220171

PATIENT
  Sex: Female

DRUGS (1)
  1. RIBOCICLIB [Suspect]
     Active Substance: RIBOCICLIB
     Indication: Product used for unknown indication
     Dosage: UNK
     Route: 065

REACTIONS (7)
  - Femur fracture [Fatal]
  - Pain [Unknown]
  - Metastatic neoplasm [Unknown]
  - Bone disorder [Unknown]
  - Lung disorder [Unknown]
  - Hypoglycaemia [Unknown]
  - Central nervous system lesion [Unknown]

NARRATIVE: CASE EVENT DATE: 20240223
